FAERS Safety Report 7165502-6 (Version None)
Quarter: 2010Q4

REPORT INFORMATION
  Report Type: 
  Country: None (occurrence: None)
  Receive Date: 20101215
  Receipt Date: 20100125
  Transmission Date: 20110411
  Serious: No
  Sender: FDA-Public Use
  Company Number: US-AMGEN-KDL382930

PATIENT

DRUGS (7)
  1. ENBREL [Suspect]
     Indication: RHEUMATOID ARTHRITIS
     Dosage: 50 MG, QWK
     Route: 058
     Dates: start: 20080114
  2. CETIRIZINE HYDROCHLORIDE [Concomitant]
  3. RABEPRAZOLE SODIUM [Concomitant]
  4. VITAMINS [Concomitant]
  5. MOMETASONE FUROATE MONOHYDRATE [Concomitant]
  6. UNSPECIFIED MEDICATION [Concomitant]
  7. CALCIUM WITH VITAMIN D [Concomitant]

REACTIONS (2)
  - INJECTION SITE PAIN [None]
  - SPINAL COLUMN STENOSIS [None]
